FAERS Safety Report 23586645 (Version 2)
Quarter: 2024Q2

REPORT INFORMATION
  Report Type: Spontaneous
  Country: CO (occurrence: None)
  Receive Date: 20240301
  Receipt Date: 20240418
  Transmission Date: 20240716
  Serious: Yes (Death, Hospitalization, Other)
  Sender: FDA-Public Use
  Company Number: 2024A048908

PATIENT
  Age: 13965 Day
  Sex: Female
  Weight: 65 kg

DRUGS (1)
  1. FASENRA [Suspect]
     Active Substance: BENRALIZUMAB
     Indication: Asthma
     Route: 058
     Dates: start: 20190826

REACTIONS (4)
  - Cardio-respiratory arrest [Fatal]
  - Nerve injury [Fatal]
  - Asthmatic crisis [Fatal]
  - Aspiration [Fatal]

NARRATIVE: CASE EVENT DATE: 20220701
